FAERS Safety Report 4513244-5 (Version None)
Quarter: 2004Q4

REPORT INFORMATION
  Report Type: 
  Country: None (occurrence: None)
  Receive Date: 20041130
  Receipt Date: 20041108
  Transmission Date: 20050328
  Serious: Yes (Other)
  Sender: FDA-Public Use
  Company Number: PHFR2004GB04182

PATIENT
  Sex: Male

DRUGS (1)
  1. GLEEVEC [Suspect]
     Indication: GASTROINTESTINAL STROMAL TUMOUR
     Dosage: 200 MG, BID
     Route: 048

REACTIONS (4)
  - CANDIDIASIS [None]
  - CENTRAL LINE INFECTION [None]
  - ENDOCARDITIS BACTERIAL [None]
  - FUNGAL ENDOCARDITIS [None]
